FAERS Safety Report 9650776 (Version 1)
Quarter: 2013Q4

REPORT INFORMATION
  Report Type: Spontaneous
  Country: US (occurrence: US)
  Receive Date: 20131029
  Receipt Date: 20131029
  Transmission Date: 20140711
  Serious: Yes (Disabling, Other)
  Sender: FDA-Public Use
  Company Number: US-SHIRE-ALL1-2013-07101

PATIENT
  Age: 50 Year
  Sex: Male

DRUGS (1)
  1. ADDERALL XR [Suspect]
     Indication: ATTENTION DEFICIT/HYPERACTIVITY DISORDER
     Dosage: 15 MG, UNKNOWN
     Route: 048
     Dates: end: 2013

REACTIONS (4)
  - Disability [Unknown]
  - Disturbance in attention [Unknown]
  - Fear [Unknown]
  - Drug dose omission [Unknown]
